FAERS Safety Report 5471961-7 (Version None)
Quarter: 2007Q3

REPORT INFORMATION
  Report Type: 
  Country: None (occurrence: None)
  Receive Date: 20070928
  Receipt Date: 20070917
  Transmission Date: 20080115
  Serious: Yes (Death, Other)
  Sender: FDA-Public Use
  Company Number: BY-PFIZER INC-2007077062

PATIENT
  Age: 72 Year

DRUGS (1)
  1. ZYVOX [Suspect]
     Indication: BACTERAEMIA
     Route: 042

REACTIONS (2)
  - MYELOID LEUKAEMIA [None]
  - SEPSIS [None]
